FAERS Safety Report 25992389 (Version 1)
Quarter: 2025Q4

REPORT INFORMATION
  Report Type: Spontaneous
  Country: EU (occurrence: EU)
  Receive Date: 20251103
  Receipt Date: 20251103
  Transmission Date: 20260117
  Serious: Yes (Other)
  Sender: NOVO NORDISK
  Company Number: EU-NOVOPROD-1550081

PATIENT
  Age: 23 Year

DRUGS (3)
  1. NOVOSEVEN [Suspect]
     Active Substance: COAGULATION FACTOR VIIA RECOMBINANT HUMAN
     Indication: Factor VIII deficiency
     Dosage: 90 MG/KG, QID
  2. NOVOSEVEN [Suspect]
     Active Substance: COAGULATION FACTOR VIIA RECOMBINANT HUMAN
     Dosage: NEW REGIMEN
  3. EMICIZUMAB [Concomitant]
     Active Substance: EMICIZUMAB
     Indication: Factor VIII deficiency
     Dosage: UNK

REACTIONS (3)
  - Epistaxis [Recovered/Resolved]
  - Haemoglobin decreased [Recovered/Resolved]
  - Nasal septum perforation [Recovered/Resolved]

NARRATIVE: CASE EVENT DATE: 20250201
